FAERS Safety Report 8157620-0 (Version None)
Quarter: 2012Q1

REPORT INFORMATION
  Report Type: 
  Country: None (occurrence: None)
  Receive Date: 20120217
  Receipt Date: 20120208
  Transmission Date: 20120608
  Serious: Yes (Other)
  Sender: FDA-Public Use
  Company Number: 2012SP007192

PATIENT
  Age: 49 Year
  Sex: Female
  Weight: 54.4316 kg

DRUGS (11)
  1. CELEBREX [Concomitant]
  2. HYDROCHLOROTHIAZIDE [Concomitant]
  3. VIOXX [Concomitant]
  4. CITALOPRAM [Concomitant]
  5. HYDROCODOE BITARTRATE AND ACETAMINOPHEN [Concomitant]
  6. REMERON [Suspect]
     Indication: PRODUCT USED FOR UNKNOWN INDICATION
  7. GABAPENTIN [Concomitant]
  8. ALPRAZOLAM [Concomitant]
  9. PROAIR HFA [Concomitant]
  10. LISINOPRIL [Suspect]
     Indication: HYPERTENSION
  11. NORVASC [Suspect]
     Indication: HYPERTENSION
     Dosage: 10 MG; QD; PO
     Route: 048
     Dates: start: 20110101

REACTIONS (6)
  - AORTIC OCCLUSION [None]
  - BLOOD POTASSIUM DECREASED [None]
  - HYPERTENSION [None]
  - NEOPLASM MALIGNANT [None]
  - ABDOMINAL DISCOMFORT [None]
  - PAIN [None]
